FAERS Safety Report 25963093 (Version 3)
Quarter: 2025Q4

REPORT INFORMATION
  Report Type: Report from Study
  Country: CA (occurrence: None)
  Receive Date: 20251027
  Receipt Date: 20251211
  Transmission Date: 20260118
  Serious: Yes (Other)
  Sender: UCB
  Company Number: CA-UCBSA-2024005289

PATIENT
  Age: 49 Year

DRUGS (3)
  1. BIMEKIZUMAB [Suspect]
     Active Substance: BIMEKIZUMAB
     Indication: Psoriasis
     Dosage: 320 MILLIGRAM, EV 4 WEEKS X 4
  2. BIMEKIZUMAB [Suspect]
     Active Substance: BIMEKIZUMAB
     Dosage: 320 MILLIGRAM, EV 8 WEEKS
  3. BIMEKIZUMAB [Suspect]
     Active Substance: BIMEKIZUMAB
     Dosage: 320 MILLIGRAM, EV 8 WEEKS

REACTIONS (13)
  - Seizure [Unknown]
  - Pyrexia [Unknown]
  - Lethargy [Unknown]
  - Cough [Unknown]
  - Psoriasis [Not Recovered/Not Resolved]
  - Irritability [Unknown]
  - Feeling abnormal [Unknown]
  - Apathy [Unknown]
  - Dizziness [Not Recovered/Not Resolved]
  - General physical health deterioration [Unknown]
  - Intentional dose omission [Unknown]
  - Product dose omission issue [Unknown]
  - Inappropriate schedule of product administration [Unknown]
